FAERS Safety Report 7012603-9 (Version None)
Quarter: 2010Q3

REPORT INFORMATION
  Report Type: 
  Country: None (occurrence: None)
  Receive Date: 20100914
  Receipt Date: 20091018
  Transmission Date: 20110219
  Serious: Yes (Other)
  Sender: FDA-Public Use
  Company Number: 2009264879

PATIENT
  Sex: Female

DRUGS (1)
  1. CYTOTEC [Suspect]

REACTIONS (1)
  - BRONCHOSPASM [None]
